FAERS Safety Report 15988090 (Version 1)
Quarter: 2019Q1

REPORT INFORMATION
  Report Type: Spontaneous
  Country: DK (occurrence: DK)
  Receive Date: 20190220
  Receipt Date: 20190220
  Transmission Date: 20190418
  Serious: Yes (Hospitalization)
  Sender: FDA-Public Use
  Company Number: DK-ACCORD-108202

PATIENT
  Sex: Female

DRUGS (1)
  1. SIMVASTATIN. [Suspect]
     Active Substance: SIMVASTATIN
     Indication: CEREBRAL ATROPHY
     Dosage: THE DOSE GRADUALLY INCREASED TO 80 MG IN THE PERIOD 17SEC2016 TO 20NOV2016
     Route: 048
     Dates: start: 20160917

REACTIONS (4)
  - Myalgia [Unknown]
  - Subdural haematoma [Unknown]
  - Multiple sclerosis [Not Recovered/Not Resolved]
  - Arthralgia [Unknown]
